FAERS Safety Report 6523811-5 (Version None)
Quarter: 2009Q4

REPORT INFORMATION
  Report Type: 
  Country: None (occurrence: None)
  Receive Date: 20091231
  Receipt Date: 20091221
  Transmission Date: 20100525
  Serious: Yes (Hospitalization, Other)
  Sender: FDA-Public Use
  Company Number: US-JNJFOC-20091206280

PATIENT
  Sex: Male

DRUGS (16)
  1. HALOPERIDOL [Suspect]
     Indication: AGGRESSION
     Dosage: DIVIDED DOSES
     Route: 065
  2. HALOPERIDOL [Suspect]
     Indication: AGITATION
     Dosage: DIVIDED DOSES
     Route: 065
  3. ASPIRIN [Concomitant]
     Route: 065
  4. ATORVASTATIN CALCIUM [Concomitant]
     Route: 065
  5. CLOPIDOGREL BISULFATE [Concomitant]
     Route: 065
  6. DULOXETINE HYDROCHLORIDE [Concomitant]
     Route: 065
  7. FUROSEMIDE [Concomitant]
     Route: 065
  8. QUINAPRIL [Concomitant]
     Route: 065
  9. METOPROLOL TARTRATE [Concomitant]
     Route: 065
  10. POTASSIUM [Concomitant]
     Route: 065
  11. WARFARIN [Concomitant]
     Route: 065
  12. INSULIN [Concomitant]
     Route: 065
  13. GABAPENTIN [Concomitant]
     Indication: PAIN
     Route: 065
  14. ACETAMINOPHEN AND HYDROCODONE BITARTRATE [Concomitant]
     Indication: PAIN
     Route: 065
  15. TRAMADOL [Concomitant]
     Indication: PAIN
     Route: 065
  16. OXYCODONE [Concomitant]
     Indication: PAIN
     Route: 065

REACTIONS (2)
  - DEPRESSED LEVEL OF CONSCIOUSNESS [None]
  - SEDATION [None]
